FAERS Safety Report 5199589-7 (Version None)
Quarter: 2007Q1

REPORT INFORMATION
  Report Type: 
  Country: None (occurrence: None)
  Receive Date: 20070103
  Receipt Date: 20070103
  Transmission Date: 20070707
  Serious: Yes (Hospitalization)
  Sender: FDA-Public Use
  Company Number: None

PATIENT
  Sex: Female

DRUGS (6)
  1. GLEEVEC [Suspect]
     Indication: GLIOBLASTOMA MULTIFORME
     Dosage: 600 MG QD
  2. HYDROXYUREA [Suspect]
     Dosage: 500 MG BID
  3. RAD001 [Suspect]
     Dosage: 205 MG QD
  4. TEGRETOL [Concomitant]
  5. DECADRON [Concomitant]
  6. PHENOBARBITAL TAB [Concomitant]

REACTIONS (5)
  - DEHYDRATION [None]
  - HYPERCHOLESTEROLAEMIA [None]
  - HYPONATRAEMIA [None]
  - NAUSEA [None]
  - VOMITING [None]
